FAERS Safety Report 5027377-0 (Version None)
Quarter: 2006Q2

REPORT INFORMATION
  Report Type: 
  Country: None (occurrence: None)
  Receive Date: 20060615
  Receipt Date: 20051124
  Transmission Date: 20061013
  Serious: Yes (Life-Threatening, Hospitalization, Other)
  Sender: FDA-Public Use
  Company Number: JP-MERCK-0511USA04456

PATIENT
  Age: 79 Year
  Sex: Female

DRUGS (7)
  1. ZOCOR [Suspect]
     Route: 048
  2. BENET [Concomitant]
     Route: 048
  3. DOGMATYL [Concomitant]
     Route: 048
  4. RIZE [Concomitant]
     Route: 048
  5. LUDIOMIL [Concomitant]
     Route: 048
  6. JUVELA [Concomitant]
     Route: 048
  7. LENDORMIN [Concomitant]
     Route: 048

REACTIONS (4)
  - FALL [None]
  - PNEUMONIA [None]
  - RENAL FAILURE [None]
  - RHABDOMYOLYSIS [None]
